FAERS Safety Report 8465690-5 (Version None)
Quarter: 2012Q2

REPORT INFORMATION
  Report Type: 
  Country: None (occurrence: None)
  Receive Date: 20120620
  Receipt Date: 20120620
  Transmission Date: 20120825
  Serious: Yes (Other)
  Sender: FDA-Public Use
  Company Number: None

PATIENT
  Age: 24 Year
  Sex: Male

DRUGS (1)
  1. GEODON [Suspect]
     Dosage: 60 MG TWICE DAILY ORAL
     Route: 048
     Dates: start: 20120517, end: 20120607

REACTIONS (3)
  - SELF-INJURIOUS IDEATION [None]
  - AGGRESSION [None]
  - ABNORMAL BEHAVIOUR [None]
